FAERS Safety Report 7053849-3 (Version None)
Quarter: 2010Q4

REPORT INFORMATION
  Report Type: 
  Country: None (occurrence: None)
  Receive Date: 20101020
  Receipt Date: 20101013
  Transmission Date: 20110411
  Serious: Yes (Hospitalization, Other)
  Sender: FDA-Public Use
  Company Number: PHHO2010CN13404

PATIENT
  Sex: Male
  Weight: 65 kg

DRUGS (7)
  1. BLINDED ALISKIREN ALI+TAB+CF [Suspect]
     Indication: CARDIAC FAILURE
     Dosage: CODE NOT BROKEN
     Route: 048
     Dates: start: 20100614, end: 20100802
  2. ENALAPRIL MALEATE [Suspect]
     Indication: CARDIAC FAILURE
     Dosage: CODE NOT BROKEN
     Route: 048
     Dates: start: 20100614, end: 20100802
  3. BLINDED NO TREATMENT RECEIVED NOMED [Suspect]
     Indication: CARDIAC FAILURE
     Dosage: CODE NOT BROKEN
     Route: 048
     Dates: start: 20100614, end: 20100802
  4. COMPARATOR ENALAPRIL [Suspect]
     Indication: CARDIAC FAILURE
     Dosage: UNK
     Route: 048
     Dates: start: 20100423, end: 20100531
  5. ALISKIREN [Suspect]
     Indication: CARDIAC FAILURE
     Dosage: UNK
     Route: 048
     Dates: start: 20100531, end: 20100614
  6. ACERDIL [Concomitant]
     Indication: CONGESTIVE CARDIOMYOPATHY
     Dosage: UNK
     Dates: start: 20100803
  7. METOPROLOL [Concomitant]
     Indication: CONGESTIVE CARDIOMYOPATHY
     Dosage: UNK
     Dates: start: 20100803

REACTIONS (11)
  - ASTHENIA [None]
  - CARDIAC FAILURE [None]
  - COUGH [None]
  - DECREASED APPETITE [None]
  - DISEASE PROGRESSION [None]
  - DRUG INEFFECTIVE [None]
  - DYSPNOEA [None]
  - DYSPNOEA PAROXYSMAL NOCTURNAL [None]
  - HYPOTENSION [None]
  - OEDEMA [None]
  - UPPER RESPIRATORY TRACT INFECTION [None]
